FAERS Safety Report 14594530 (Version 1)
Quarter: 2018Q1

REPORT INFORMATION
  Report Type: Spontaneous
  Country: DE (occurrence: DE)
  Receive Date: 20180302
  Receipt Date: 20180302
  Transmission Date: 20180509
  Serious: Yes (Other)
  Sender: FDA-Public Use
  Company Number: DE-TEVA-2018-DE-861685

PATIENT
  Age: 62 Year
  Sex: Female

DRUGS (4)
  1. PAROXETIN [Concomitant]
     Active Substance: PAROXETINE HYDROCHLORIDE
     Route: 048
     Dates: start: 20170531, end: 20170608
  2. PAROXETIN [Concomitant]
     Active Substance: PAROXETINE HYDROCHLORIDE
     Route: 048
     Dates: start: 20170609
  3. TRIMIPRAMINE [Suspect]
     Active Substance: TRIMIPRAMINE
     Route: 048
     Dates: start: 20170516, end: 20170616
  4. TRIMIPRAMINE [Suspect]
     Active Substance: TRIMIPRAMINE
     Route: 048
     Dates: start: 20170509, end: 20170515

REACTIONS (1)
  - Neutropenia [Not Recovered/Not Resolved]

NARRATIVE: CASE EVENT DATE: 20170614
